FAERS Safety Report 7688324-6 (Version None)
Quarter: 2011Q3

REPORT INFORMATION
  Report Type: 
  Country: None (occurrence: None)
  Receive Date: 20110817
  Receipt Date: 20110810
  Transmission Date: 20111222
  Serious: Yes (Hospitalization, Other)
  Sender: FDA-Public Use
  Company Number: US-PFIZER INC-2011168491

PATIENT
  Sex: Female

DRUGS (1)
  1. SUTENT [Suspect]
     Indication: METASTATIC RENAL CELL CARCINOMA
     Dosage: 50 MG, DAILY, 1 CAPSULE DAILY, CYCLE 4 WEEKS ON + OFF
     Dates: start: 20110713, end: 20110727

REACTIONS (4)
  - ASTHENIA [None]
  - PANCREATITIS [None]
  - DECREASED APPETITE [None]
  - URINARY TRACT INFECTION [None]
